FAERS Safety Report 10570249 (Version 1)
Quarter: 2014Q4

REPORT INFORMATION
  Report Type: Spontaneous
  Country: TR (occurrence: TR)
  Receive Date: 20141107
  Receipt Date: 20141107
  Transmission Date: 20150529
  Serious: Yes (Death, Hospitalization)
  Sender: FDA-Public Use
  Company Number: PHHY2014TR145245

PATIENT
  Age: 78 Year
  Sex: Male

DRUGS (3)
  1. ACETYLSALICYLIC ACID [Suspect]
     Active Substance: ASPIRIN
     Indication: PRODUCT USED FOR UNKNOWN INDICATION
     Dosage: 100 MG, QD
     Route: 065
  2. CIPROFLOXACIN. [Suspect]
     Active Substance: CIPROFLOXACIN
     Indication: PRODUCT USED FOR UNKNOWN INDICATION
     Dosage: 500 MG, BID
     Route: 065
  3. RANITIDINE [Concomitant]
     Active Substance: RANITIDINE\RANITIDINE HYDROCHLORIDE
     Indication: PRODUCT USED FOR UNKNOWN INDICATION
     Dosage: 40 MG, QD
     Route: 065

REACTIONS (18)
  - Haemorrhage [Unknown]
  - Rash [Unknown]
  - Respiratory failure [Unknown]
  - Skin lesion [Unknown]
  - Disseminated intravascular coagulation [Fatal]
  - Dermatitis bullous [Unknown]
  - Rash macular [Unknown]
  - Skin necrosis [Unknown]
  - Multi-organ failure [Fatal]
  - Stevens-Johnson syndrome [Unknown]
  - Pyrexia [Unknown]
  - Malaise [Unknown]
  - Rash erythematous [Unknown]
  - Diarrhoea [Unknown]
  - Toxic epidermal necrolysis [Unknown]
  - Nausea [Unknown]
  - Agitation [Unknown]
  - Hepatic enzyme increased [Unknown]
